FAERS Safety Report 11291371 (Version 1)
Quarter: 2015Q3

REPORT INFORMATION
  Report Type: Spontaneous
  Country: US (occurrence: None)
  Receive Date: 20150720
  Receipt Date: 20150720
  Transmission Date: 20151125
  Serious: Yes (Hospitalization)
  Sender: FDA-Public Use
  Company Number: None

PATIENT
  Age: 59 Year
  Sex: Female
  Weight: 62 kg

DRUGS (10)
  1. LENALIDONIDE 5 MG [Suspect]
     Active Substance: LENALIDOMIDE
     Indication: PLASMA CELL MYELOMA
     Dosage: DAYS 1-28
     Route: 048
     Dates: start: 20150715, end: 20150717
  2. POTASSIUM CHLORIDE. [Concomitant]
     Active Substance: POTASSIUM CHLORIDE
  3. ACYCLOVIR. [Concomitant]
     Active Substance: ACYCLOVIR
  4. TIOTROPIUM [Concomitant]
     Active Substance: TIOTROPIUM
  5. MORPHINE 15MG [Suspect]
     Active Substance: MORPHINE
     Indication: PLASMA CELL MYELOMA
     Route: 048
     Dates: start: 20141017, end: 20150717
  6. TRIAMCINOLONE ACETOMIDE [Concomitant]
  7. COCOA BUTTER [Concomitant]
     Active Substance: COCOA BUTTER
  8. ALBUTEROL. [Concomitant]
     Active Substance: ALBUTEROL
  9. ACETAMINOPHEN. [Concomitant]
     Active Substance: ACETAMINOPHEN
  10. CALCIUM [Concomitant]
     Active Substance: CALCIUM

REACTIONS (4)
  - Constipation [None]
  - Compression fracture [None]
  - Hypoaesthesia [None]
  - Disease progression [None]

NARRATIVE: CASE EVENT DATE: 20150717
